FAERS Safety Report 8990769 (Version 1)
Quarter: 2012Q4

REPORT INFORMATION
  Report Type: Spontaneous
  Country: US (occurrence: None)
  Receive Date: 20121226
  Receipt Date: 20121226
  Transmission Date: 20130627
  Serious: Yes (Death)
  Sender: FDA-Public Use
  Company Number: None

PATIENT
  Sex: Male
  Weight: 79.5 kg

DRUGS (3)
  1. CLARAVIS [Suspect]
     Dosage: isotretinoin 20 mg (claravis) daily po
     Route: 048
     Dates: start: 20120522, end: 20120911
  2. CLARAVIS [Suspect]
     Dates: start: 20121024, end: 201212
  3. ISOTRETINOIN [Suspect]
     Dosage: isotretinoin 40 mg daily po
     Route: 048

REACTIONS (3)
  - Acne [None]
  - Completed suicide [None]
  - Product substitution issue [None]
